FAERS Safety Report 7504816-4 (Version None)
Quarter: 2011Q2

REPORT INFORMATION
  Report Type: 
  Country: None (occurrence: None)
  Receive Date: 20110525
  Receipt Date: 20110301
  Transmission Date: 20111010
  Serious: No
  Sender: FDA-Public Use
  Company Number: US-AMGEN-USASP2011011553

PATIENT
  Sex: Female

DRUGS (2)
  1. ARANESP [Suspect]
     Indication: MYELODYSPLASTIC SYNDROME
     Dosage: 300 A?G, Q2WK
     Dates: start: 20110101
  2. ASPIRIN [Concomitant]

REACTIONS (1)
  - BLOOD GLUCOSE ABNORMAL [None]
